FAERS Safety Report 21386311 (Version 1)
Quarter: 2022Q3

REPORT INFORMATION
  Report Type: Spontaneous
  Country: US (occurrence: US)
  Receive Date: 20220928
  Receipt Date: 20220928
  Transmission Date: 20221026
  Serious: No
  Sender: FDA-Public Use
  Company Number: US-MYLANLABS-2022M1092197

PATIENT
  Sex: Male

DRUGS (1)
  1. METHYLPHENIDATE [Suspect]
     Active Substance: METHYLPHENIDATE
     Indication: Product used for unknown indication
     Dosage: 1.1 MILLIGRAM QH (10 MG / 9HR)
     Route: 062
     Dates: start: 20220902

REACTIONS (2)
  - Product adhesion issue [Unknown]
  - Accidental exposure to product by child [Unknown]
